FAERS Safety Report 17237497 (Version 2)
Quarter: 2020Q1

REPORT INFORMATION
  Report Type: Spontaneous
  Country: US (occurrence: US)
  Receive Date: 20200106
  Receipt Date: 20200114
  Transmission Date: 20200409
  Serious: Yes (Life-Threatening)
  Sender: FDA-Public Use
  Company Number: US-PFIZER INC-2020000783

PATIENT
  Age: 71 Year
  Sex: Female

DRUGS (2)
  1. BUPIVACAINE HCL [Suspect]
     Active Substance: BUPIVACAINE HYDROCHLORIDE
     Indication: KNEE ARTHROPLASTY
  2. BUPIVACAINE HCL [Suspect]
     Active Substance: BUPIVACAINE HYDROCHLORIDE
     Indication: LOCAL ANAESTHESIA
     Dosage: 20 ML, UNK (INJECTED IN 5 ML INCREMENTS WITH CAREFUL ASPIRATIONS BEFORE EVERY INJECTION)

REACTIONS (6)
  - Cardiac arrest [Recovered/Resolved]
  - Somnolence [Recovered/Resolved]
  - Generalised tonic-clonic seizure [Recovered/Resolved]
  - Local anaesthetic systemic toxicity [Recovered/Resolved]
  - Ventricular fibrillation [Recovered/Resolved]
  - Hypotension [Recovered/Resolved]
